FAERS Safety Report 11885745 (Version 2)
Quarter: 2016Q1

REPORT INFORMATION
  Report Type: Spontaneous
  Country: US (occurrence: US)
  Receive Date: 20160104
  Receipt Date: 20160122
  Transmission Date: 20160526
  Serious: No
  Sender: FDA-Public Use
  Company Number: US-TAKEDA-2015TUS018173

PATIENT
  Sex: Female
  Weight: 72.11 kg

DRUGS (9)
  1. BALSALAZIDE DISODIUM. [Concomitant]
     Active Substance: BALSALAZIDE DISODIUM
     Dosage: 3 DF, TID
  2. RIZATRIPTAN BENZOATE. [Concomitant]
     Active Substance: RIZATRIPTAN BENZOATE
  3. TYLENOL [Concomitant]
     Active Substance: ACETAMINOPHEN
     Route: 048
  4. COLACE [Concomitant]
     Active Substance: DOCUSATE SODIUM
     Dosage: 2 DF, QD
     Route: 048
  5. PREDNISONE. [Concomitant]
     Active Substance: PREDNISONE
     Dosage: 50 MG, UNK
     Route: 048
  6. TYLENOL SINUS SEVERE CONGESTION [Concomitant]
  7. AMITRIPTYLINE [Concomitant]
     Active Substance: AMITRIPTYLINE
     Dosage: 1 DF, QD
     Route: 048
  8. MULTIVITAMINUM [Concomitant]
     Dosage: 1 DF, QD
     Route: 048
  9. ENTYVIO [Suspect]
     Active Substance: VEDOLIZUMAB
     Indication: PRODUCT USED FOR UNKNOWN INDICATION
     Dosage: 300 MG, UNK
     Route: 042
     Dates: start: 20151005, end: 20151019

REACTIONS (1)
  - Hypersensitivity [Recovering/Resolving]
